FAERS Safety Report 21416192 (Version 1)
Quarter: 2022Q4

REPORT INFORMATION
  Report Type: Spontaneous
  Country: US (occurrence: US)
  Receive Date: 20221006
  Receipt Date: 20221006
  Transmission Date: 20230113
  Serious: No
  Sender: FDA-Public Use
  Company Number: US-ALLERGAN-2201361US

PATIENT
  Sex: Female

DRUGS (3)
  1. VRAYLAR [Interacting]
     Active Substance: CARIPRAZINE
     Indication: Product used for unknown indication
     Dosage: UNK
  2. FLUVOXAMINE [Interacting]
     Active Substance: FLUVOXAMINE
     Indication: Product used for unknown indication
     Dosage: 300 MG
  3. FLUVOXAMINE [Interacting]
     Active Substance: FLUVOXAMINE
     Dosage: 150 MG

REACTIONS (5)
  - Labelled drug-drug interaction medication error [Unknown]
  - Hallucination [Unknown]
  - Swelling [Unknown]
  - Sleep disorder [Unknown]
  - Heart rate increased [Unknown]
